FAERS Safety Report 4712564-9 (Version None)
Quarter: 2005Q3

REPORT INFORMATION
  Report Type: 
  Country: None (occurrence: None)
  Receive Date: 20050711
  Receipt Date: 20050621
  Transmission Date: 20060218
  Serious: Yes (Other)
  Sender: FDA-Public Use
  Company Number: 215565

PATIENT
  Sex: Female

DRUGS (2)
  1. RITUXAN [Suspect]
     Indication: LYMPHOMA
     Dosage: UNKNOWN
     Route: 065
     Dates: start: 20050428
  2. BACTRIM [Concomitant]

REACTIONS (1)
  - STEVENS-JOHNSON SYNDROME [None]
